FAERS Safety Report 8187206-3 (Version None)
Quarter: 2012Q1

REPORT INFORMATION
  Report Type: 
  Country: None (occurrence: None)
  Receive Date: 20120306
  Receipt Date: 20120227
  Transmission Date: 20120608
  Serious: Yes (Disabling)
  Sender: FDA-Public Use
  Company Number: GB-TEVA-325384ISR

PATIENT
  Age: 47 Year
  Sex: Male
  Weight: 96.9 kg

DRUGS (28)
  1. RAMIPRIL [Concomitant]
     Dates: start: 20111213, end: 20120208
  2. LAXIDO [Concomitant]
     Dates: start: 20111110, end: 20111208
  3. ACETAMINOPHEN [Concomitant]
     Dates: start: 20111110, end: 20111208
  4. OTOMIZE [Concomitant]
     Dates: start: 20111114, end: 20111205
  5. AMLODIPINE [Suspect]
     Dates: start: 20120117, end: 20120207
  6. NITROGLYCERIN [Concomitant]
     Dates: start: 20111213, end: 20120208
  7. NITROGLYCERIN [Concomitant]
     Dates: start: 20111025, end: 20111209
  8. PROCTOSEDYL [Concomitant]
     Dates: start: 20111025, end: 20111209
  9. BISOPROLOL FUMARATE [Concomitant]
     Dates: start: 20111213, end: 20120208
  10. OMEPRAZOLE [Concomitant]
     Dates: start: 20111213, end: 20120218
  11. GLYCEROL 2.6% [Concomitant]
     Dates: start: 20111207, end: 20111209
  12. BETAMETHASONE VALERATE [Concomitant]
     Dates: start: 20120117, end: 20120214
  13. ASPIRIN [Concomitant]
     Dates: start: 20111213, end: 20120208
  14. SIMVASTATIN [Concomitant]
     Dates: start: 20111213, end: 20120208
  15. VALPROATE SODIUM [Concomitant]
     Dates: start: 20111110, end: 20111208
  16. RAMIPRIL [Concomitant]
     Dates: start: 20111110, end: 20111208
  17. SIMVASTATIN [Concomitant]
     Dates: start: 20111110, end: 20111208
  18. PROCTOSEDYL [Concomitant]
     Dates: start: 20111213, end: 20120208
  19. BENDROFLUMETHIAZIDE [Concomitant]
     Dates: start: 20111213, end: 20120208
  20. VALPROATE SODIUM [Concomitant]
     Dates: start: 20111213, end: 20120208
  21. ACETAMINOPHEN [Concomitant]
     Dates: start: 20111213, end: 20120208
  22. OMEPRAZOLE [Concomitant]
     Dates: start: 20111110, end: 20111208
  23. SENNA [Concomitant]
     Dates: start: 20111130, end: 20111228
  24. BISOPROLOL FUMARATE [Concomitant]
     Dates: start: 20111110, end: 20111208
  25. BENDROFLUMETHIAZIDE [Concomitant]
     Dates: start: 20111110, end: 20111208
  26. ASPIRIN [Concomitant]
     Dates: start: 20111110, end: 20111208
  27. LAXIDO [Concomitant]
     Dates: start: 20111213, end: 20120208
  28. CINCHOCAINE [Concomitant]
     Dates: start: 20111125, end: 20111205

REACTIONS (1)
  - EPILEPSY [None]
